FAERS Safety Report 19495752 (Version 3)
Quarter: 2021Q3

REPORT INFORMATION
  Report Type: Report from Study
  Country: AU (occurrence: AU)
  Receive Date: 20210706
  Receipt Date: 20210925
  Transmission Date: 20211014
  Serious: Yes (Hospitalization, Other)
  Sender: FDA-Public Use
  Company Number: NVSC2021AU145011

PATIENT
  Sex: Male

DRUGS (3)
  1. CANDESARTAN. [Suspect]
     Active Substance: CANDESARTAN
     Indication: PRODUCT USE IN UNAPPROVED INDICATION
     Dosage: 4 MG, QD
     Route: 065
  2. BISOPROLOL [Suspect]
     Active Substance: BISOPROLOL
     Indication: PRODUCT USE IN UNAPPROVED INDICATION
     Dosage: 2.5 MG, QD
     Route: 065
  3. FUROSEMIDE. [Suspect]
     Active Substance: FUROSEMIDE
     Indication: PRODUCT USE IN UNAPPROVED INDICATION
     Dosage: 40 MG, BID
     Route: 065

REACTIONS (6)
  - Cardiac failure chronic [Unknown]
  - Renal impairment [Unknown]
  - Ejection fraction decreased [Unknown]
  - Diverticulitis [Unknown]
  - Condition aggravated [Unknown]
  - Dyspnoea exertional [Recovering/Resolving]
